FAERS Safety Report 13831380 (Version 1)
Quarter: 2017Q3

REPORT INFORMATION
  Report Type: Report from Study
  Country: US (occurrence: US)
  Receive Date: 20170803
  Receipt Date: 20170803
  Transmission Date: 20171127
  Serious: Yes (Other)
  Sender: FDA-Public Use
  Company Number: US-ARIAD-2016US007451

PATIENT
  Sex: Female

DRUGS (3)
  1. ICLUSIG [Suspect]
     Active Substance: PONATINIB
     Indication: ACUTE LYMPHOCYTIC LEUKAEMIA
     Dosage: 30 MG, QD
     Route: 048
     Dates: start: 20141201
  2. ICLUSIG [Suspect]
     Active Substance: PONATINIB
     Dosage: 30 MG, QD
     Route: 048
  3. ICLUSIG [Suspect]
     Active Substance: PONATINIB
     Dosage: 30 MG, QD
     Route: 048

REACTIONS (9)
  - Breath sounds abnormal [Unknown]
  - Cough [Unknown]
  - Bone marrow transplant [Unknown]
  - Anxiety [Unknown]
  - Fatigue [Unknown]
  - Graft versus host disease [Unknown]
  - Central venous catheterisation [Unknown]
  - Nervousness [Unknown]
  - Hospitalisation [Unknown]
